FAERS Safety Report 6467252-8 (Version None)
Quarter: 2009Q4

REPORT INFORMATION
  Report Type: 
  Country: None (occurrence: None)
  Receive Date: 20091202
  Receipt Date: 20091120
  Transmission Date: 20100525
  Serious: Yes (Hospitalization)
  Sender: FDA-Public Use
  Company Number: DE-BRISTOL-MYERS SQUIBB COMPANY-14482285

PATIENT
  Age: 51 Year
  Sex: Female

DRUGS (7)
  1. ABILIFY [Suspect]
     Route: 048
     Dates: start: 20061001, end: 20061122
  2. LEPONEX [Suspect]
     Dosage: INTERRUPTED ON SEP06; OCT06-22NOV2006:900MG/DAY DOSE REDUCED FROM 23NOV2006:4*100MG/DAY
     Route: 048
     Dates: start: 19930101
  3. RISPERDAL [Suspect]
     Route: 048
     Dates: start: 20061001, end: 20061122
  4. CYMBALTA [Suspect]
     Route: 048
     Dates: start: 20061001, end: 20061122
  5. DOXEPIN HCL [Suspect]
     Route: 048
     Dates: start: 20061001, end: 20061122
  6. GASTROZEPIN [Concomitant]
     Route: 048
     Dates: start: 20061001, end: 20061122
  7. ATOSIL [Concomitant]

REACTIONS (3)
  - CONVULSION [None]
  - HYPONATRAEMIA [None]
  - INFECTION [None]
